FAERS Safety Report 5431151-0 (Version None)
Quarter: 2007Q3

REPORT INFORMATION
  Report Type: 
  Country: None (occurrence: None)
  Receive Date: 20070830
  Receipt Date: 20070306
  Transmission Date: 20080115
  Serious: No
  Sender: FDA-Public Use
  Company Number: A0642091A

PATIENT
  Age: 51 Year
  Sex: Male

DRUGS (3)
  1. WELLBUTRIN XL [Suspect]
     Indication: DEPRESSION
     Dosage: 300MG PER DAY
     Route: 048
     Dates: start: 20070226
  2. XANAX [Concomitant]
  3. AMBIEN [Concomitant]

REACTIONS (3)
  - ANXIETY [None]
  - DIZZINESS [None]
  - INSOMNIA [None]
